FAERS Safety Report 8875923 (Version 3)
Quarter: 2012Q4

REPORT INFORMATION
  Report Type: 
  Country: US (occurrence: US)
  Receive Date: 20121023
  Receipt Date: 20121217
  Transmission Date: 20130627
  Serious: Yes (Death)
  Sender: FDA-Public Use
  Company Number: US-GLAXOSMITHKLINE-A0998445A

PATIENT
  Age: 30 Year
  Sex: Female

DRUGS (1)
  1. ARIXTRA [Suspect]
     Indication: PULMONARY EMBOLISM
     Dosage: 7.5MG Unknown
     Route: 065
     Dates: start: 20110610, end: 20121003

REACTIONS (1)
  - Lung cancer metastatic [Fatal]
